FAERS Safety Report 9155620 (Version 2)
Quarter: 2013Q1

REPORT INFORMATION
  Report Type: Spontaneous
  Country: PK (occurrence: PK)
  Receive Date: 20130311
  Receipt Date: 20130326
  Transmission Date: 20140127
  Serious: Yes (Disabling)
  Sender: FDA-Public Use
  Company Number: PK-GLAXOSMITHKLINE-B0873575A

PATIENT
  Age: 4 Year
  Sex: Male

DRUGS (1)
  1. ZINACEF [Suspect]
     Indication: OROPHARYNGEAL PAIN
     Dosage: 75MG PER DAY
     Route: 042

REACTIONS (3)
  - Gaze palsy [Recovered/Resolved]
  - Muscle spasms [Recovered/Resolved]
  - Product quality issue [Unknown]
